FAERS Safety Report 4617563-3 (Version None)
Quarter: 2005Q1

REPORT INFORMATION
  Report Type: 
  Country: None (occurrence: None)
  Receive Date: 20050322
  Receipt Date: 20050307
  Transmission Date: 20050727
  Serious: Yes (Hospitalization)
  Sender: FDA-Public Use
  Company Number: US-2004-034471

PATIENT
  Age: 55 Year
  Sex: Male
  Weight: 79.4 kg

DRUGS (6)
  1. BETASERON [Suspect]
     Indication: MULTIPLE SCLEROSIS
     Dosage: 8 MIU, DOSE, FREQUENCY + ROUTE USED
     Dates: start: 20040902, end: 20041030
  2. NEURONTIN [Concomitant]
  3. ASPIRIN [Concomitant]
  4. PROTOPIC [Concomitant]
  5. ELIDEL (PIMECROLIMUS) [Concomitant]
  6. TRIAMCINOLONE [Concomitant]

REACTIONS (10)
  - CHEST DISCOMFORT [None]
  - COLD SWEAT [None]
  - DERMATITIS EXFOLIATIVE [None]
  - DRUG HYPERSENSITIVITY [None]
  - DRY SKIN [None]
  - DYSPNOEA [None]
  - INCOHERENT [None]
  - PALPITATIONS [None]
  - RESPIRATORY TRACT INFECTION [None]
  - SINUS BRADYCARDIA [None]
